FAERS Safety Report 15925634 (Version 1)
Quarter: 2019Q1

REPORT INFORMATION
  Report Type: Spontaneous
  Country: ES (occurrence: ES)
  Receive Date: 20190206
  Receipt Date: 20190206
  Transmission Date: 20190417
  Serious: Yes (Other)
  Sender: FDA-Public Use
  Company Number: ES-AUROBINDO-AUR-APL-2019-005344

PATIENT

DRUGS (1)
  1. PIPERACILLIN+TAZOBACTAM 4/0.5G POWDERFORSOLUTIONFORINFUSION [Suspect]
     Active Substance: PIPERACILLIN SODIUM\TAZOBACTAM SODIUM
     Indication: CHOLECYSTITIS ACUTE
     Dosage: 1 DOSAGE FORM EVERY 8 HOURS (4G EVERY 8 HOURS)
     Route: 042
     Dates: start: 20170622, end: 20170630

REACTIONS (1)
  - Hypokalaemia [Recovered/Resolved]

NARRATIVE: CASE EVENT DATE: 20170624
